FAERS Safety Report 4451975-6 (Version None)
Quarter: 2004Q3

REPORT INFORMATION
  Report Type: 
  Country: None (occurrence: None)
  Receive Date: 20040915
  Receipt Date: 20040915
  Transmission Date: 20050211
  Serious: Yes (Hospitalization)
  Sender: FDA-Public Use
  Company Number: None

PATIENT
  Age: 77 Year
  Sex: Male
  Weight: 62.0521 kg

DRUGS (13)
  1. WARFARIN SODIUM [Suspect]
     Indication: ANTICOAGULANT THERAPY
     Dosage: 2-3 MG PO DAILY
     Route: 048
  2. AZITHROMYCIN [Suspect]
     Indication: BRONCHITIS
     Dosage: PO
     Route: 048
  3. CRESTOR [Concomitant]
  4. ZETIA [Concomitant]
  5. SYNTHROID [Concomitant]
  6. TOPROL-XL [Concomitant]
  7. FLOMAX [Concomitant]
  8. LASIX [Concomitant]
  9. COUMADIN [Concomitant]
  10. ATACAND [Concomitant]
  11. ARAVA [Concomitant]
  12. AVELOX [Concomitant]
  13. Z-PAK [Concomitant]

REACTIONS (6)
  - BRONCHITIS [None]
  - GASTRIC ULCER [None]
  - GASTRITIS [None]
  - GASTROINTESTINAL HAEMORRHAGE [None]
  - INTERNATIONAL NORMALISED RATIO INCREASED [None]
  - LARGE INTESTINAL ULCER [None]
